FAERS Safety Report 5883886-3 (Version None)
Quarter: 2008Q3

REPORT INFORMATION
  Report Type: 
  Country: None (occurrence: None)
  Receive Date: 20080915
  Receipt Date: 20080904
  Transmission Date: 20090109
  Serious: Yes (Hospitalization)
  Sender: FDA-Public Use
  Company Number: A0747389A

PATIENT
  Age: 40 Year
  Sex: Female
  Weight: 118.2 kg

DRUGS (2)
  1. AVANDIA [Suspect]
     Dosage: 4MG PER DAY
     Route: 065
     Dates: start: 20050728, end: 20051207
  2. AMARYL [Concomitant]
     Dates: start: 20050728, end: 20051026

REACTIONS (1)
  - MYOCARDIAL INFARCTION [None]
